FAERS Safety Report 20577407 (Version 2)
Quarter: 2022Q2

REPORT INFORMATION
  Report Type: Spontaneous
  Country: US (occurrence: None)
  Receive Date: 20220310
  Receipt Date: 20220413
  Transmission Date: 20220721
  Serious: No
  Sender: FDA-Public Use
  Company Number: 2022A064695

PATIENT
  Sex: Female

DRUGS (2)
  1. BUDESONIDE\FORMOTEROL\GLYCOPYRRONIUM [Suspect]
     Active Substance: BUDESONIDE\FORMOTEROL\GLYCOPYRRONIUM
     Indication: Bronchospasm
     Dosage: 160MCG/9MCG/4.8MCG,EVERY 12 HOURS,120-DOSE INHALER ,2 PUFFS TWICE DAILY
     Route: 055
     Dates: start: 202201
  2. ALBUTEROL [Concomitant]
     Active Substance: ALBUTEROL

REACTIONS (5)
  - Hypertension [Recovered/Resolved]
  - Anxiety [Unknown]
  - Palpitations [Recovered/Resolved]
  - Wrong technique in product usage process [Recovered/Resolved]
  - Product delivery mechanism issue [Unknown]

NARRATIVE: CASE EVENT DATE: 20220101
